FAERS Safety Report 7747832-X (Version None)
Quarter: 2011Q3

REPORT INFORMATION
  Report Type: 
  Country: None (occurrence: None)
  Receive Date: 20110913
  Receipt Date: 20110907
  Transmission Date: 20111222
  Serious: Yes (Other)
  Sender: FDA-Public Use
  Company Number: US-AMGEN-USASP2011028532

PATIENT
  Age: 57 Year
  Sex: Female
  Weight: 70 kg

DRUGS (5)
  1. ALPHA LIPOIC ACID [Concomitant]
  2. LYRICA [Concomitant]
  3. NPLATE [Suspect]
     Indication: THROMBOCYTOPENIA
     Dates: start: 20101103, end: 20110309
  4. HYDROCORTISONE [Concomitant]
  5. PERIDEX                            /00016001/ [Concomitant]

REACTIONS (5)
  - IRON OVERLOAD [None]
  - REFRACTORINESS TO PLATELET TRANSFUSION [None]
  - THROMBOCYTOPENIA [None]
  - STAPHYLOCOCCAL INFECTION [None]
  - BACTERAEMIA [None]
